FAERS Safety Report 14942040 (Version 3)
Quarter: 2018Q2

REPORT INFORMATION
  Report Type: Spontaneous
  Country: GB (occurrence: GB)
  Receive Date: 20180527
  Receipt Date: 20180529
  Transmission Date: 20180711
  Serious: Yes (Hospitalization, Other)
  Sender: FDA-Public Use
  Company Number: GB-009507513-1805GBR008929

PATIENT
  Age: 68 Year
  Sex: Female
  Weight: 61.1 kg

DRUGS (1)
  1. PEMBROLIZUMAB. [Suspect]
     Active Substance: PEMBROLIZUMAB
     Indication: NON-SMALL CELL LUNG CANCER
     Dosage: 12 MINUTES INFUSED OF IMMUNOTHERAPY APPROXIMATELY 44MLS AT TIME OF INCIDENT.
     Route: 042
     Dates: start: 20180425, end: 20180425

REACTIONS (3)
  - Feeling hot [Unknown]
  - Unresponsive to stimuli [Recovered/Resolved]
  - Loss of consciousness [Recovered/Resolved]

NARRATIVE: CASE EVENT DATE: 20180425
